FAERS Safety Report 11025618 (Version 1)
Quarter: 2015Q2

REPORT INFORMATION
  Report Type: Spontaneous
  Country: US (occurrence: None)
  Receive Date: 20150413
  Receipt Date: 20150413
  Transmission Date: 20150821
  Serious: Yes (Hospitalization)
  Sender: FDA-Public Use
  Company Number: None

PATIENT
  Age: 54 Year
  Sex: Female

DRUGS (15)
  1. HYDROCODONE-ACETAMINOPHEN (NORCO) [Concomitant]
  2. ALBUTEROL (PROAIR HFA) [Concomitant]
  3. FAMOTIDINE (PEPCID) [Concomitant]
  4. TERBINAFINE (BRICANYL) [Concomitant]
  5. OMEPRAZOLE (PRILOSEC) [Concomitant]
  6. PREGABALIN (LYRICA) [Concomitant]
  7. BECLOMETHASONE DIPROPIONATE (QVAR) [Concomitant]
  8. NITROGLYCERIN (NITROSTAT) [Concomitant]
  9. DIAZEPAM (VALIUM) [Concomitant]
  10. EPINEPHRINE (EPIPEN 2-PAK) [Concomitant]
  11. AMPYRA [Suspect]
     Active Substance: DALFAMPRIDINE
     Indication: MULTIPLE SCLEROSIS
     Route: 048
     Dates: start: 201101
  12. FLUTICASONE (FLONASE) [Concomitant]
  13. DOCUSATE SODIUM (COLACE) [Concomitant]
  14. SALMETEROL (SERVENT DISKUS) [Concomitant]
  15. HYDROCODONE-INUPROFEN (VICOPROFEN) [Concomitant]

REACTIONS (1)
  - Vomiting [None]

NARRATIVE: CASE EVENT DATE: 20150317
